FAERS Safety Report 7492851-4 (Version None)
Quarter: 2011Q2

REPORT INFORMATION
  Report Type: 
  Country: None (occurrence: None)
  Receive Date: 20110520
  Receipt Date: 20110506
  Transmission Date: 20111010
  Serious: Yes (Hospitalization, Other)
  Sender: FDA-Public Use
  Company Number: US-RANBAXY-2011RR-44449

PATIENT
  Sex: Female

DRUGS (12)
  1. LEVAQUIN [Suspect]
     Dosage: 500 MG, UNK
     Route: 048
     Dates: start: 20051012
  2. LEVAQUIN [Suspect]
     Dosage: 500 MG, UNK
     Route: 048
     Dates: start: 20080922
  3. LUNESTA [Concomitant]
     Indication: SLEEP DISORDER THERAPY
     Route: 065
  4. CIPROFLOXACIN [Suspect]
     Indication: ANTIBIOTIC THERAPY
     Dosage: 500 MG, UNK
     Route: 048
  5. AZITHROMYCIN [Concomitant]
     Indication: ANTIBIOTIC THERAPY
     Route: 065
  6. LEVAQUIN [Suspect]
     Dosage: 500 MG, UNK
     Route: 048
     Dates: start: 20060201
  7. SIMVASTATIN [Concomitant]
     Route: 065
  8. METHYLPREDNISOLONE [Suspect]
     Indication: INFLAMMATION
     Dosage: 4 MG, UNK
     Route: 048
     Dates: start: 20051025, end: 20090101
  9. PREDNISOLONE [Suspect]
     Indication: STEROID THERAPY
     Dosage: 10 MG, UNK
     Route: 048
     Dates: start: 20061212, end: 20070101
  10. DOXYCYCLINE [Concomitant]
     Indication: ANTIBIOTIC THERAPY
     Route: 065
  11. LEVAQUIN [Suspect]
     Indication: URINARY TRACT INFECTION
     Dosage: 500 MG, UNK
     Route: 048
     Dates: start: 20050408
  12. FLUOXETINE [Concomitant]
     Indication: DEPRESSION
     Route: 065

REACTIONS (2)
  - LIGAMENT RUPTURE [None]
  - TENOSYNOVITIS STENOSANS [None]
